FAERS Safety Report 19575167 (Version 1)
Quarter: 2021Q3

REPORT INFORMATION
  Report Type: Spontaneous
  Country: US (occurrence: US)
  Receive Date: 20210719
  Receipt Date: 20210719
  Transmission Date: 20211014
  Serious: No
  Sender: FDA-Public Use
  Company Number: US-HIKMA PHARMACEUTICALS USA INC.-US-H14001-20-03357

PATIENT
  Sex: Male

DRUGS (1)
  1. MIDAZOLAM HYDROCHLORIDE. [Suspect]
     Active Substance: MIDAZOLAM HYDROCHLORIDE
     Indication: SEIZURE
     Dosage: 1 ML IN EACH NOSTRIL, AT ONSET OF SEIZURES
     Route: 045
     Dates: start: 2018

REACTIONS (1)
  - Off label use [Not Recovered/Not Resolved]
